FAERS Safety Report 12836306 (Version 1)
Quarter: 2016Q4

REPORT INFORMATION
  Report Type: Spontaneous
  Country: US (occurrence: US)
  Receive Date: 20161011
  Receipt Date: 20161011
  Transmission Date: 20170207
  Serious: Yes (Other)
  Sender: FDA-Public Use
  Company Number: None

PATIENT
  Age: 58 Year
  Sex: Female
  Weight: 68.95 kg

DRUGS (17)
  1. O2 [Concomitant]
  2. K+ [Concomitant]
     Active Substance: POTASSIUM
  3. ACETAMINOPHEN. [Concomitant]
     Active Substance: ACETAMINOPHEN
  4. ZOLOFT [Concomitant]
     Active Substance: SERTRALINE HYDROCHLORIDE
  5. FLONASE [Suspect]
     Active Substance: FLUTICASONE PROPIONATE
     Indication: MULTIPLE ALLERGIES
     Dosage: ?          QUANTITY:? (19L IMAGE/S;?
     Dates: start: 20160621, end: 20160627
  6. VITAMIN D3 [Concomitant]
     Active Substance: CHOLECALCIFEROL
  7. ASA [Concomitant]
     Active Substance: ASPIRIN
  8. MELOXICAM. [Concomitant]
     Active Substance: MELOXICAM
  9. ALBUTEROL. [Concomitant]
     Active Substance: ALBUTEROL
  10. FISH OIL [Concomitant]
     Active Substance: FISH OIL
  11. ZINC [Concomitant]
     Active Substance: ZINC\ZINC CHLORIDE
  12. CA+ [Concomitant]
  13. ALTERA NEBULIZER [Concomitant]
  14. MG+ [Concomitant]
  15. OMEPRAZOLE. [Concomitant]
     Active Substance: OMEPRAZOLE
  16. VITAMIN C [Concomitant]
     Active Substance: ASCORBIC ACID
  17. MVI [Concomitant]
     Active Substance: VITAMINS

REACTIONS (6)
  - Dyspnoea [None]
  - Rash erythematous [None]
  - Abdominal distension [None]
  - Pulse abnormal [None]
  - Documented hypersensitivity to administered product [None]
  - Blood pressure increased [None]

NARRATIVE: CASE EVENT DATE: 201606
